FAERS Safety Report 10272293 (Version 3)
Quarter: 2015Q2

REPORT INFORMATION
  Report Type: Spontaneous
  Country: CH (occurrence: CH)
  Receive Date: 20140702
  Receipt Date: 20150626
  Transmission Date: 20150821
  Serious: Yes (Hospitalization, Other)
  Sender: FDA-Public Use
  Company Number: CH-UCBSA-2014004106

PATIENT
  Age: 62 Year
  Sex: Male

DRUGS (3)
  1. IMUREK [Concomitant]
     Active Substance: AZATHIOPRINE
     Dosage: UNK
     Dates: start: 201002
  2. HUMIRA [Suspect]
     Active Substance: ADALIMUMAB
     Dosage: 40 MG, WEEKLY (QW)
     Route: 058
     Dates: start: 20131003, end: 201312
  3. CIMZIA [Suspect]
     Active Substance: CERTOLIZUMAB PEGOL
     Dosage: 400 MG, MONTHLY (QM)
     Route: 058
     Dates: start: 201105, end: 201310

REACTIONS (5)
  - Cough [Recovering/Resolving]
  - Haemophilus infection [Unknown]
  - Candida infection [Unknown]
  - Pneumonia cryptococcal [Recovering/Resolving]
  - Aspergillus infection [Unknown]

NARRATIVE: CASE EVENT DATE: 201309
